FAERS Safety Report 5378488-1 (Version None)
Quarter: 2007Q3

REPORT INFORMATION
  Report Type: 
  Country: None (occurrence: None)
  Receive Date: 20070702
  Receipt Date: 20070620
  Transmission Date: 20080115
  Serious: Yes (Other)
  Sender: FDA-Public Use
  Company Number: 2007SP011929

PATIENT
  Age: 62 Year
  Sex: Female

DRUGS (2)
  1. TEMODAL [Suspect]
     Indication: GLIOBLASTOMA
     Dosage: 200 MG;
     Dates: start: 20021003, end: 20021227
  2. PHENYTOIN [Concomitant]

REACTIONS (1)
  - COLON CANCER [None]
